FAERS Safety Report 4390959-3 (Version None)
Quarter: 2004Q3

REPORT INFORMATION
  Report Type: 
  Country: None (occurrence: None)
  Receive Date: 20040706
  Receipt Date: 20040624
  Transmission Date: 20050211
  Serious: Yes (Death, Other)
  Sender: FDA-Public Use
  Company Number: 04-05-0687

PATIENT
  Age: 50 Year
  Sex: Female

DRUGS (2)
  1. CLOZAPINE [Suspect]
     Indication: SCHIZOAFFECTIVE DISORDER
     Dosage: 300-400MG QD ORAL
     Route: 048
     Dates: start: 20031001, end: 20040401
  2. CHEMOTHERAPY [Concomitant]

REACTIONS (3)
  - PNEUMONIA [None]
  - VAGINAL CANCER [None]
  - VULVAL CANCER [None]
